FAERS Safety Report 4937331-2 (Version None)
Quarter: 2006Q1

REPORT INFORMATION
  Report Type: 
  Country: None (occurrence: None)
  Receive Date: 20060309
  Receipt Date: 20060227
  Transmission Date: 20060701
  Serious: Yes (Disabling)
  Sender: FDA-Public Use
  Company Number: GB-ABBOTT-06P-167-0326352-00

PATIENT
  Sex: Female

DRUGS (3)
  1. KLARICID [Suspect]
     Indication: INFLAMMATION
     Route: 048
     Dates: start: 20060124, end: 20060127
  2. SEROXAT [Concomitant]
     Indication: ANXIETY
     Route: 048
     Dates: start: 20051116
  3. METRONIDAZOLE [Concomitant]
     Indication: INFLAMMATION
     Route: 048
     Dates: start: 20051124, end: 20060131

REACTIONS (2)
  - MOUTH ULCERATION [None]
  - SWELLING FACE [None]
